FAERS Safety Report 23321023 (Version 1)
Quarter: 2023Q4

REPORT INFORMATION
  Report Type: Spontaneous
  Country: FR (occurrence: FR)
  Receive Date: 20231220
  Receipt Date: 20231220
  Transmission Date: 20240110
  Serious: Yes (Disabling)
  Sender: FDA-Public Use
  Company Number: None

PATIENT
  Age: 49 Year
  Weight: 95 kg

DRUGS (10)
  1. ROSUVASTATIN [Suspect]
     Active Substance: ROSUVASTATIN
     Indication: Prophylaxis
     Dosage: 1 COMPRIM? PAR JOUR
     Route: 048
     Dates: start: 20201028, end: 20220929
  2. LEVOTHYROXINE SODIUM [Concomitant]
     Active Substance: LEVOTHYROXINE SODIUM
     Indication: Product used for unknown indication
  3. KARDEGIC [Concomitant]
     Active Substance: ASPIRIN DL-LYSINE
     Indication: Acute myocardial infarction
  4. BISOPROLOL ACCORD HEALTHCARE 2,5 mg, comprim? pellicul? s?cable [Concomitant]
     Indication: Acute myocardial infarction
  5. EZETIMIBE\SIMVASTATIN [Suspect]
     Active Substance: EZETIMIBE\SIMVASTATIN
     Indication: Prophylaxis
     Dosage: 1 COMPRIM? PAR JOUR
     Route: 048
     Dates: start: 20220929
  6. EZETIMIBE\SIMVASTATIN [Suspect]
     Active Substance: EZETIMIBE\SIMVASTATIN
     Indication: Prophylaxis
     Dosage: 1 COMPRIM? PAR JOUR
     Route: 048
     Dates: start: 20200622, end: 20200902
  7. ATORVASTATIN CALCIUM [Suspect]
     Active Substance: ATORVASTATIN CALCIUM
     Indication: Prophylaxis
     Dosage: 1 COMPRIM? PAR JOUR
     Route: 048
     Dates: start: 20190522, end: 20200622
  8. ATORVASTATIN CALCIUM [Suspect]
     Active Substance: ATORVASTATIN CALCIUM
     Indication: Prophylaxis
     Dosage: 1 COMPRIM? PAR JOUR
     Route: 048
     Dates: start: 20200902, end: 20201028
  9. EZETIMIBE ALMUS 10 mg, comprim? [Concomitant]
     Indication: Product used for unknown indication
  10. METFORMINE ARROW LAB 500 mg, comprim? pellicul? [Concomitant]
     Indication: Diabetes mellitus

REACTIONS (2)
  - Myalgia [Not Recovered/Not Resolved]
  - Paraesthesia [Not Recovered/Not Resolved]

NARRATIVE: CASE EVENT DATE: 20190525
